FAERS Safety Report 13667577 (Version 1)
Quarter: 2017Q2

REPORT INFORMATION
  Report Type: Report from Study
  Country: RO (occurrence: RO)
  Receive Date: 20170620
  Receipt Date: 20170620
  Transmission Date: 20170830
  Serious: Yes (Other)
  Sender: FDA-Public Use
  Company Number: RO-ROCHE-1567287

PATIENT
  Age: 14 Year
  Sex: Female
  Weight: 46.5 kg

DRUGS (9)
  1. L THYROXINE [Concomitant]
     Active Substance: LEVOTHYROXINE SODIUM
     Indication: ENDOCRINE DISORDER
     Route: 048
  2. SOMATROPIN [Suspect]
     Active Substance: SOMATROPIN
     Indication: TURNER^S SYNDROME
     Dosage: FORM STRENGTH: 10MG/2ML
     Route: 058
     Dates: start: 20101206, end: 201307
  3. SOMATROPIN [Suspect]
     Active Substance: SOMATROPIN
     Indication: GROWTH FAILURE
     Dosage: FORM STRENGTH: 10MG/2ML
     Route: 058
     Dates: start: 201307, end: 201310
  4. VIGANTOLETTEN [Concomitant]
     Active Substance: CHOLECALCIFEROL
     Indication: PRODUCT USED FOR UNKNOWN INDICATION
     Route: 065
     Dates: start: 20131009
  5. SOMATROPIN [Suspect]
     Active Substance: SOMATROPIN
     Dosage: FORM STRENGTH: 10MG/2ML
     Route: 058
     Dates: start: 201404, end: 201410
  6. SOMATROPIN [Suspect]
     Active Substance: SOMATROPIN
     Dosage: FORM STRENGTH: 10MG/2ML
     Route: 058
     Dates: start: 201410, end: 20150310
  7. OESTROGEL [Concomitant]
     Active Substance: ESTRADIOL
     Indication: PRODUCT USED FOR UNKNOWN INDICATION
     Route: 065
     Dates: start: 20131009
  8. SOMATROPIN [Suspect]
     Active Substance: SOMATROPIN
     Dosage: FORM STRENGTH: 10MG/2ML
     Route: 058
     Dates: start: 201310, end: 201404
  9. EUTHYROX [Concomitant]
     Active Substance: LEVOTHYROXINE SODIUM
     Indication: PRODUCT USED FOR UNKNOWN INDICATION
     Route: 065
     Dates: start: 20130809

REACTIONS (1)
  - Bone cyst [Recovering/Resolving]

NARRATIVE: CASE EVENT DATE: 20150305
